FAERS Safety Report 6085924-4 (Version None)
Quarter: 2009Q1

REPORT INFORMATION
  Report Type: 
  Country: None (occurrence: None)
  Receive Date: 20090220
  Receipt Date: 20090212
  Transmission Date: 20090719
  Serious: Yes (Hospitalization, Other)
  Sender: FDA-Public Use
  Company Number: AU-ABBOTT-08P-008-0485020-01

PATIENT
  Sex: Male
  Weight: 120 kg

DRUGS (28)
  1. HUMIRA [Suspect]
     Indication: CROHN'S DISEASE
     Route: 058
     Dates: start: 20050414, end: 20081023
  2. MARTOSE [Concomitant]
     Indication: VITAMIN SUPPLEMENTATION
     Dates: start: 20080401
  3. QUICK-EZE [Concomitant]
     Indication: REFLUX OESOPHAGITIS
     Dates: start: 20050703
  4. SOMAC [Concomitant]
     Indication: REFLUX OESOPHAGITIS
     Dates: start: 20030601, end: 20050624
  5. ZANTAC [Concomitant]
     Indication: GASTROOESOPHAGEAL REFLUX PROPHYLAXIS
     Dates: start: 20050625, end: 20050703
  6. ZANTAC [Concomitant]
     Dates: start: 20081110
  7. NUTRIWAY DOUBLE X [Concomitant]
     Indication: VITAMIN SUPPLEMENTATION
     Dates: start: 20030901
  8. NUTRIWAY OMEGA 3 [Concomitant]
     Indication: VITAMIN SUPPLEMENTATION
     Dates: start: 20030901
  9. IMURAN [Concomitant]
     Indication: CROHN'S DISEASE
     Dates: start: 20030701, end: 20060427
  10. IMURAN [Concomitant]
     Dates: start: 20060428, end: 20060827
  11. CELEBREX [Concomitant]
     Indication: ARTHRITIS
     Dates: start: 20050315
  12. DIMETAPP [Concomitant]
     Indication: LOWER RESPIRATORY TRACT INFECTION
     Dosage: ELIXOR
     Dates: start: 20050324, end: 20050428
  13. DIMETAPP [Concomitant]
     Indication: NASOPHARYNGITIS
  14. DI-GESTIC [Concomitant]
     Indication: ABDOMINAL PAIN
     Dates: start: 20060429, end: 20060429
  15. MAXOLON [Concomitant]
     Indication: VOMITING
     Dates: start: 20060429, end: 20060429
  16. MAXOLON [Concomitant]
     Indication: NAUSEA
  17. STEMETIL [Concomitant]
     Indication: VOMITING
     Dates: start: 20060429, end: 20060430
  18. STEMETIL [Concomitant]
     Indication: NAUSEA
  19. ACETAMINOPHEN [Concomitant]
     Indication: ABDOMINAL PAIN
     Dates: start: 20060430
  20. CLARATYNE [Concomitant]
     Indication: RHINITIS ALLERGIC
     Dates: start: 20060301
  21. LIQUID TEARS [Concomitant]
     Indication: DRY EYE
     Dates: start: 20060210
  22. METAMUCIL [Concomitant]
     Indication: CONSTIPATION
     Dosage: TABLESPOON
     Dates: start: 20060401, end: 20060802
  23. MORPHINE [Concomitant]
     Indication: ABDOMINAL PAIN
     Dates: start: 20060429, end: 20060429
  24. RECTOGESIC [Concomitant]
     Indication: ANAL FISTULA
     Route: 061
     Dates: start: 20070524
  25. RECTOGESIC [Concomitant]
     Indication: HAEMORRHOIDS
     Dates: start: 20070620
  26. REANDRON [Concomitant]
     Indication: PROPHYLAXIS
     Dates: start: 20070621, end: 20070621
  27. REANDRON [Concomitant]
     Indication: HYPOGONADISM MALE
     Dates: start: 20070802
  28. REANDRON [Concomitant]

REACTIONS (1)
  - GLIOBLASTOMA MULTIFORME [None]
